FAERS Safety Report 20977020 (Version 4)
Quarter: 2023Q1

REPORT INFORMATION
  Report Type: Spontaneous
  Country: FR (occurrence: FR)
  Receive Date: 20220617
  Receipt Date: 20230105
  Transmission Date: 20230418
  Serious: Yes (Other)
  Sender: FDA-Public Use
  Company Number: FR-MLMSERVICE-20220608-3599348-1

PATIENT
  Age: 49 Year
  Sex: Male

DRUGS (2)
  1. PREGABALIN [Suspect]
     Active Substance: PREGABALIN
     Indication: Neurological symptom
     Dosage: 100MG BID(FREQ:12 H)
  2. LEVETIRACETAM [Suspect]
     Active Substance: LEVETIRACETAM
     Indication: Neurological symptom
     Dosage: 1000 MG BID (FREQ:12 H)

REACTIONS (2)
  - Nicotinic acid deficiency [Recovered/Resolved]
  - Decreased appetite [Unknown]
